FAERS Safety Report 10553661 (Version 1)
Quarter: 2014Q4

REPORT INFORMATION
  Report Type: Spontaneous
  Country: GB (occurrence: GB)
  Receive Date: 20141030
  Receipt Date: 20141030
  Transmission Date: 20150529
  Serious: Yes (Death, Hospitalization)
  Sender: FDA-Public Use
  Company Number: GB-JNJFOC-20141015226

PATIENT
  Age: 25 Year
  Sex: Female

DRUGS (5)
  1. COCODAMOL [Suspect]
     Active Substance: ACETAMINOPHEN\CODEINE PHOSPHATE
     Indication: DYSPHAGIA
     Route: 065
  2. COLD AND COUGH PREPARATION [Suspect]
     Active Substance: UNSPECIFIED INGREDIENT
     Indication: NASOPHARYNGITIS
     Route: 065
  3. LEMSIP WITH PHENYLEPHRINE [Suspect]
     Active Substance: ACETAMINOPHEN\ASCORBIC ACID\PHENYLEPHRINE
     Indication: NASOPHARYNGITIS
     Route: 065
  4. COCODAMOL [Suspect]
     Active Substance: ACETAMINOPHEN\CODEINE PHOSPHATE
     Indication: MOUTH ULCERATION
     Route: 065
  5. PARACETAMOL [Suspect]
     Active Substance: ACETAMINOPHEN
     Indication: NASOPHARYNGITIS
     Route: 065

REACTIONS (5)
  - Accidental overdose [Fatal]
  - Product use issue [Unknown]
  - Jaundice [Fatal]
  - Gait disturbance [Fatal]
  - Drug administration error [Unknown]
